FAERS Safety Report 6173770-2 (Version None)
Quarter: 2009Q2

REPORT INFORMATION
  Report Type: 
  Country: None (occurrence: None)
  Receive Date: 20090429
  Receipt Date: 20090429
  Transmission Date: 20091009
  Serious: Yes (Death)
  Sender: FDA-Public Use
  Company Number: None

PATIENT
  Age: 22 Year
  Sex: Male
  Weight: 74.8 kg

DRUGS (5)
  1. PROPOFOL [Suspect]
     Indication: STATUS EPILEPTICUS
     Dosage: 90 - 150 MG/KG/MIN CONT. INJ. IV
     Route: 042
     Dates: start: 20090321, end: 20090325
  2. KEPPRA [Concomitant]
  3. VALPROATE SODIUM [Concomitant]
  4. PHENYTOIN SODIUM [Concomitant]
  5. ATIVAN [Concomitant]

REACTIONS (3)
  - ELECTROCARDIOGRAM CHANGE [None]
  - HYPERKALAEMIA [None]
  - STATUS EPILEPTICUS [None]
